FAERS Safety Report 15531714 (Version 1)
Quarter: 2018Q4

REPORT INFORMATION
  Report Type: Spontaneous
  Country: DK (occurrence: DK)
  Receive Date: 20181019
  Receipt Date: 20181019
  Transmission Date: 20190205
  Serious: Yes (Other)
  Sender: FDA-Public Use
  Company Number: DK-TEVA-2018-DK-966001

PATIENT
  Age: 63 Year
  Sex: Male
  Weight: 94 kg

DRUGS (1)
  1. CLARITHROMYCIN ^TEVA^ [Suspect]
     Active Substance: CLARITHROMYCIN
     Indication: LEGIONELLA INFECTION
     Dosage: 1000 MILLIGRAM DAILY; STYRKE: 500 MG.
     Route: 048
     Dates: start: 20180907, end: 20180915

REACTIONS (1)
  - Eye haemorrhage [Recovering/Resolving]

NARRATIVE: CASE EVENT DATE: 20180911
